FAERS Safety Report 6091371-1 (Version None)
Quarter: 2009Q1

REPORT INFORMATION
  Report Type: 
  Country: None (occurrence: None)
  Receive Date: 20090225
  Receipt Date: 20081124
  Transmission Date: 20090719
  Serious: No
  Sender: FDA-Public Use
  Company Number: A0752196A

PATIENT
  Age: 82 Year
  Sex: Female

DRUGS (3)
  1. VERAMYST [Suspect]
     Dosage: 1SPR TWICE PER DAY
     Route: 045
     Dates: start: 20080829, end: 20081007
  2. THYROID MEDICATION [Concomitant]
  3. ALLEGRA [Concomitant]
     Dosage: 180MG PER DAY
     Route: 048
     Dates: start: 20080829

REACTIONS (2)
  - BACK PAIN [None]
  - MUSCLE SPASMS [None]
